FAERS Safety Report 22525979 (Version 3)
Quarter: 2024Q1

REPORT INFORMATION
  Report Type: Spontaneous
  Country: US (occurrence: US)
  Receive Date: 20230606
  Receipt Date: 20240227
  Transmission Date: 20240409
  Serious: No
  Sender: FDA-Public Use
  Company Number: US-PFIZER INC-PV202300015969

PATIENT
  Age: 74 Year
  Sex: Female
  Weight: 97.506 kg

DRUGS (1)
  1. XELJANZ XR [Suspect]
     Active Substance: TOFACITINIB CITRATE
     Indication: Rheumatoid arthritis
     Dosage: 11 MG, 1X/DAY
     Dates: start: 202211

REACTIONS (1)
  - Dry eye [Recovered/Resolved]

NARRATIVE: CASE EVENT DATE: 20230501
